FAERS Safety Report 12467704 (Version 1)
Quarter: 2016Q2

REPORT INFORMATION
  Report Type: Spontaneous
  Country: US (occurrence: US)
  Receive Date: 20160615
  Receipt Date: 20160615
  Transmission Date: 20160815
  Serious: No
  Sender: FDA-Public Use
  Company Number: US-GLAXOSMITHKLINE-US2016076673

PATIENT
  Age: 88 Year
  Sex: Female

DRUGS (6)
  1. MULTAQ [Concomitant]
     Active Substance: DRONEDARONE
  2. FUROSEMIDE. [Concomitant]
     Active Substance: FUROSEMIDE
  3. KLOR-CON [Concomitant]
     Active Substance: POTASSIUM CHLORIDE
  4. ADVAIR DISKUS [Suspect]
     Active Substance: FLUTICASONE PROPIONATE\SALMETEROL XINAFOATE
     Indication: ASTHMA
  5. XYZAL [Concomitant]
     Active Substance: LEVOCETIRIZINE DIHYDROCHLORIDE
  6. ADVAIR DISKUS [Suspect]
     Active Substance: FLUTICASONE PROPIONATE\SALMETEROL XINAFOATE
     Indication: CHRONIC OBSTRUCTIVE PULMONARY DISEASE
     Dosage: 1 PUFF(S), BID
     Route: 055
     Dates: start: 201603, end: 201605

REACTIONS (3)
  - Oral candidiasis [Not Recovered/Not Resolved]
  - Device use error [Recovered/Resolved]
  - Glossodynia [Not Recovered/Not Resolved]

NARRATIVE: CASE EVENT DATE: 201603
